FAERS Safety Report 5615545-6 (Version None)
Quarter: 2008Q1

REPORT INFORMATION
  Report Type: 
  Country: None (occurrence: None)
  Receive Date: 20080204
  Receipt Date: 20080204
  Transmission Date: 20080703
  Serious: Yes (Hospitalization)
  Sender: FDA-Public Use
  Company Number: None

PATIENT
  Age: 73 Year
  Sex: Male

DRUGS (1)
  1. CEPHALEXIN [Suspect]
     Indication: INFECTION
     Dates: start: 20071026, end: 20071101

REACTIONS (5)
  - NEPHRITIS INTERSTITIAL [None]
  - PRURITUS [None]
  - RASH [None]
  - RENAL FAILURE ACUTE [None]
  - URTICARIA [None]
